FAERS Safety Report 25848426 (Version 1)
Quarter: 2025Q3

REPORT INFORMATION
  Report Type: Spontaneous
  Country: US (occurrence: US)
  Receive Date: 20250925
  Receipt Date: 20250925
  Transmission Date: 20251021
  Serious: Yes (Other)
  Sender: AMGEN
  Company Number: US-AMGEN-USASP2025188161

PATIENT
  Age: 70 Year
  Sex: Male

DRUGS (4)
  1. PREDNISONE [Suspect]
     Active Substance: PREDNISONE
     Indication: Macular oedema
     Dosage: 40 MILLIGRAM, QD
     Route: 048
  2. PREDNISONE [Suspect]
     Active Substance: PREDNISONE
     Route: 048
  3. DORZOLAMIDE HYDROCHLORIDE\TIMOLOL MALEATE [Concomitant]
     Active Substance: DORZOLAMIDE HYDROCHLORIDE\TIMOLOL MALEATE
     Indication: Ocular hypertension
     Dosage: DORZOLAMIDE HCL 2%/TIMOLOL MALEATE 0.5% BID
     Route: 065
  4. BRIMONIDINE TARTRATE [Concomitant]
     Active Substance: BRIMONIDINE TARTRATE
     Indication: Ocular hypertension
     Dosage: BRIMONIDINE TARTRATE 0.2% TID
     Route: 065

REACTIONS (8)
  - Macular oedema [Recovered/Resolved]
  - Cystoid macular oedema [Recovered/Resolved]
  - Leukopenia [Recovered/Resolved]
  - Skin ulcer [Recovered/Resolved]
  - Drug intolerance [Unknown]
  - Mood altered [Unknown]
  - Conjunctivitis [Recovered/Resolved]
  - Off label use [Unknown]
